FAERS Safety Report 7810015-9 (Version None)
Quarter: 2011Q4

REPORT INFORMATION
  Report Type: 
  Country: None (occurrence: None)
  Receive Date: 20111012
  Receipt Date: 20111005
  Transmission Date: 20120403
  Serious: Yes (Other)
  Sender: FDA-Public Use
  Company Number: PHHY2011CA88543

PATIENT
  Sex: Female

DRUGS (4)
  1. FENTANYL [Suspect]
     Route: 065
  2. VITAMIN K TAB [Suspect]
     Route: 065
  3. ONDANSETRON [Suspect]
     Route: 065
  4. RANITIDINE [Suspect]
     Route: 065

REACTIONS (2)
  - JAUNDICE [None]
  - METABOLIC DISORDER [None]
